FAERS Safety Report 8713246 (Version 3)
Quarter: 2018Q4

REPORT INFORMATION
  Report Type: Report from Study
  Country: IT (occurrence: IT)
  Receive Date: 20120808
  Receipt Date: 20181228
  Transmission Date: 20190205
  Serious: Yes (Other)
  Sender: FDA-Public Use
  Company Number: IT-ROCHE-1096093

PATIENT

DRUGS (2)
  1. LAPATINIB [Suspect]
     Active Substance: LAPATINIB
     Indication: HER-2 POSITIVE BREAST CANCER
     Dosage: 1250 MG/DAY IN A FASTING, SINGLE ADMINISTRATION EVERY MORNING CONTINUOUSLY
     Route: 048
  2. CAPECITABINE. [Suspect]
     Active Substance: CAPECITABINE
     Indication: HER-2 POSITIVE BREAST CANCER
     Dosage: 1000 MG/M2 IN TWICE DAILY AFTER BREAKFAST AND AFTER DINNER FOR 14 DAYS
     Route: 048

REACTIONS (10)
  - Thrombocytopenia [Unknown]
  - Liver disorder [Unknown]
  - Anaemia [Unknown]
  - Rash [Unknown]
  - Leukopenia [Unknown]
  - Fatigue [Unknown]
  - Palmar-plantar erythrodysaesthesia syndrome [Unknown]
  - Mucosal inflammation [Unknown]
  - Diarrhoea [Unknown]
  - Neutropenia [Unknown]
